FAERS Safety Report 22367692 (Version 1)
Quarter: 2023Q2

REPORT INFORMATION
  Report Type: Spontaneous
  Country: US (occurrence: None)
  Receive Date: 20230525
  Receipt Date: 20230525
  Transmission Date: 20230722
  Serious: No
  Sender: FDA-Public Use
  Company Number: None

PATIENT
  Age: 70 Year
  Sex: Female
  Weight: 122.47 kg

DRUGS (13)
  1. OFLOXACIN [Suspect]
     Active Substance: OFLOXACIN
  2. MULT-VITAMIN (SENIOR WOMEN) [Concomitant]
  3. VITAMIN D3 [Concomitant]
     Active Substance: CHOLECALCIFEROL
  4. CALCIUM [Concomitant]
     Active Substance: CALCIUM
  5. IRON [Concomitant]
     Active Substance: IRON
  6. VITAMIN B12 [Concomitant]
     Active Substance: CYANOCOBALAMIN
  7. CHROMIUM PICCOLINATE [Concomitant]
  8. FISH OIL [Concomitant]
     Active Substance: FISH OIL
  9. NAPROXEN [Concomitant]
     Active Substance: NAPROXEN
  10. LEVOTHYROXINE [Concomitant]
     Active Substance: LEVOTHYROXINE
  11. LISINOPRIL [Concomitant]
     Active Substance: LISINOPRIL
  12. SPIRONOLACTONE [Concomitant]
     Active Substance: SPIRONOLACTONE
  13. FUROSEMIDE [Concomitant]
     Active Substance: FUROSEMIDE

REACTIONS (8)
  - Lacrimation increased [None]
  - Instillation site irritation [None]
  - Instillation site pruritus [None]
  - Instillation site pain [None]
  - Instillation site erythema [None]
  - Recalled product administered [None]
  - Drug hypersensitivity [None]
  - Adverse drug reaction [None]

NARRATIVE: CASE EVENT DATE: 20220801
